FAERS Safety Report 8947644 (Version 1)
Quarter: 2012Q4

REPORT INFORMATION
  Report Type: 
  Country: AU (occurrence: AU)
  Receive Date: 20121204
  Receipt Date: 20121204
  Transmission Date: 20130627
  Serious: Yes (Life-Threatening, Hospitalization, Other)
  Sender: FDA-Public Use
  Company Number: AU-PFIZER INC-2012285841

PATIENT
  Sex: Female
  Weight: 66 kg

DRUGS (4)
  1. CHAMPIX [Suspect]
     Indication: SMOKING CESSATION THERAPY
     Dosage: 0.5 mg, 1x/day
     Route: 048
     Dates: start: 20121029, end: 20121031
  2. CHAMPIX [Suspect]
     Dosage: 0.5 mg, 2x/day
     Route: 048
     Dates: start: 20121101, end: 20121101
  3. EFEXOR XR [Suspect]
     Indication: ANTIDEPRESSANT THERAPY
     Dosage: UNK
  4. SERTRALINE HCL [Suspect]
     Indication: ANTIDEPRESSANT THERAPY
     Dosage: UNK

REACTIONS (3)
  - Grand mal convulsion [Unknown]
  - Petit mal epilepsy [Unknown]
  - Nausea [Unknown]
